FAERS Safety Report 24216455 (Version 1)
Quarter: 2024Q3

REPORT INFORMATION
  Report Type: Spontaneous
  Country: CN (occurrence: CN)
  Receive Date: 20240816
  Receipt Date: 20240816
  Transmission Date: 20241016
  Serious: Yes (Hospitalization, Other)
  Sender: RANBAXY
  Company Number: CN-SUN PHARMACEUTICAL INDUSTRIES LTD-2024R1-463200

PATIENT
  Age: 54 Year
  Sex: Male

DRUGS (7)
  1. FUROSEMIDE [Suspect]
     Active Substance: FUROSEMIDE
     Indication: Antibiotic therapy
     Dosage: 10 MILLIGRAM, BID
     Route: 065
  2. OMEPRAZOLE [Suspect]
     Active Substance: OMEPRAZOLE
     Indication: Antibiotic therapy
     Dosage: 40 MILLIGRAM, DAILY
     Route: 065
  3. OFLOXACIN [Suspect]
     Active Substance: OFLOXACIN
     Indication: Antibiotic therapy
     Dosage: UNK
     Route: 065
  4. PIPERACILLIN SODIUM\TAZOBACTAM SODIUM [Suspect]
     Active Substance: PIPERACILLIN SODIUM\TAZOBACTAM SODIUM
     Indication: Antibiotic therapy
     Dosage: 4.5 MILLIGRAM, Q8H
     Route: 065
  5. AMBROXOL [Suspect]
     Active Substance: AMBROXOL
     Indication: Antibiotic therapy
     Dosage: UNK
     Route: 065
  6. DICLOFENAC SODIUM [Suspect]
     Active Substance: DICLOFENAC\DICLOFENAC SODIUM
     Indication: Antibiotic therapy
     Dosage: UNK
     Route: 065
  7. DEXAMETHASONE [Concomitant]
     Active Substance: DEXAMETHASONE
     Indication: Antibiotic therapy
     Dosage: 10 MILLIGRAM, DAILY
     Route: 065

REACTIONS (8)
  - Condition aggravated [Recovering/Resolving]
  - Cardiac arrest [Recovering/Resolving]
  - Dyspnoea [Recovering/Resolving]
  - Oxygen saturation decreased [Recovering/Resolving]
  - Septic shock [Recovering/Resolving]
  - Klebsiella infection [Recovering/Resolving]
  - Acinetobacter infection [Recovering/Resolving]
  - Aspergillus infection [Recovering/Resolving]
